FAERS Safety Report 9676167 (Version 2)
Quarter: 2013Q4

REPORT INFORMATION
  Report Type: Spontaneous
  Country: HR (occurrence: HR)
  Receive Date: 20131107
  Receipt Date: 20131115
  Transmission Date: 20140711
  Serious: Yes (Other)
  Sender: FDA-Public Use
  Company Number: HR-TEVA-440584ISR

PATIENT
  Age: 2 Year
  Sex: Male

DRUGS (3)
  1. KLAVOCIN BID SIRUP [Suspect]
     Indication: OROPHARYNGEAL PAIN
     Dosage: 2 SEPERATE DOSAGES
     Route: 048
     Dates: start: 20130807, end: 20130809
  2. KLAVOCIN BID SIRUP [Suspect]
     Indication: EAR INFECTION
  3. LUPOCET [Concomitant]
     Dates: start: 20130905

REACTIONS (4)
  - Diarrhoea [Recovered/Resolved]
  - Convulsion [Recovered/Resolved]
  - Irritability [Recovered/Resolved]
  - Nervousness [Recovered/Resolved]
